FAERS Safety Report 11195790 (Version 4)
Quarter: 2015Q4

REPORT INFORMATION
  Report Type: Spontaneous
  Country: US (occurrence: US)
  Receive Date: 20150617
  Receipt Date: 20151016
  Transmission Date: 20160304
  Serious: Yes (Hospitalization, Other)
  Sender: FDA-Public Use
  Company Number: US-JNJFOC-20150607246

PATIENT
  Sex: Female
  Weight: 61.24 kg

DRUGS (13)
  1. REMICADE [Suspect]
     Active Substance: INFLIXIMAB
     Indication: CROHN^S DISEASE
     Route: 042
     Dates: start: 20051228
  2. FERROUS SULFATE [Concomitant]
     Active Substance: FERROUS SULFATE\FERROUS SULFATE, DRIED
     Indication: ANAEMIA
     Route: 048
  3. REMICADE [Suspect]
     Active Substance: INFLIXIMAB
     Indication: COLITIS ULCERATIVE
     Route: 042
     Dates: start: 20051228
  4. SYNTHROID [Concomitant]
     Active Substance: LEVOTHYROXINE SODIUM
     Indication: HYPOTHYROIDISM
     Route: 048
     Dates: start: 2011
  5. MAGNESIUM [Concomitant]
     Active Substance: MAGNESIUM
     Route: 065
  6. VITAMIN D3 [Concomitant]
     Active Substance: CHOLECALCIFEROL
     Route: 065
  7. FERROUS SULFATE [Concomitant]
     Active Substance: FERROUS SULFATE\FERROUS SULFATE, DRIED
     Indication: CHRONIC KIDNEY DISEASE
     Route: 048
  8. PREDNISONE. [Concomitant]
     Active Substance: PREDNISONE
     Indication: COLITIS ULCERATIVE
     Route: 048
     Dates: start: 2004
  9. PREDNISONE. [Concomitant]
     Active Substance: PREDNISONE
     Indication: SHORT-BOWEL SYNDROME
     Route: 048
     Dates: start: 2004
  10. IRON [Concomitant]
     Active Substance: IRON
     Route: 065
  11. FLAXSEED [Concomitant]
     Active Substance: FLAX SEED
     Route: 065
  12. OMEPRAZOLE. [Concomitant]
     Active Substance: OMEPRAZOLE
     Indication: COLITIS ULCERATIVE
     Route: 048
  13. CALCIUM [Concomitant]
     Active Substance: CALCIUM
     Route: 065

REACTIONS (3)
  - Basal cell carcinoma [Recovered/Resolved]
  - Urinary tract infection [Recovering/Resolving]
  - Skin cancer [Recovered/Resolved]

NARRATIVE: CASE EVENT DATE: 2012
